FAERS Safety Report 9349292 (Version 2)
Quarter: 2013Q4

REPORT INFORMATION
  Report Type: Spontaneous
  Country: US (occurrence: US)
  Receive Date: 20130614
  Receipt Date: 20131107
  Transmission Date: 20140711
  Serious: Yes (Hospitalization)
  Sender: FDA-Public Use
  Company Number: US-B.I. PHARMACEUTICALS,INC./RIDGEFIELD-2013-BI-16419BP

PATIENT
  Sex: Female

DRUGS (10)
  1. PRADAXA [Suspect]
     Indication: ATRIAL FIBRILLATION
     Dosage: 150 MG
     Dates: start: 20110715, end: 20110818
  2. COMBIVENT [Concomitant]
     Dosage: 2 PUF
  3. SYMBICORT [Concomitant]
  4. COREG [Concomitant]
  5. SYNTHROID [Concomitant]
     Dosage: 0.05 MG
  6. COLACE [Concomitant]
  7. FOLIC ACID [Concomitant]
  8. OMEGA-3 [Concomitant]
  9. TRAZODONE [Concomitant]
  10. PROTONIX [Concomitant]

REACTIONS (2)
  - Upper gastrointestinal haemorrhage [Unknown]
  - Anaemia [Unknown]
